FAERS Safety Report 7457336-X (Version None)
Quarter: 2011Q2

REPORT INFORMATION
  Report Type: 
  Country: None (occurrence: None)
  Receive Date: 20110504
  Receipt Date: 20100920
  Transmission Date: 20111010
  Serious: No
  Sender: FDA-Public Use
  Company Number: US-KINGPHARMUSA00001-K201001180

PATIENT
  Age: 50 Year
  Sex: Male
  Weight: 68.027 kg

DRUGS (1)
  1. AVINZA [Suspect]
     Dosage: UNK

REACTIONS (5)
  - DECREASED APPETITE [None]
  - UNDERWEIGHT [None]
  - WEIGHT DECREASED [None]
  - BODY FAT DISORDER [None]
  - ADVERSE EVENT [None]
